FAERS Safety Report 4546101-9 (Version None)
Quarter: 2005Q1

REPORT INFORMATION
  Report Type: 
  Country: None (occurrence: None)
  Receive Date: 20050103
  Receipt Date: 20041214
  Transmission Date: 20050727
  Serious: Yes (Hospitalization)
  Sender: FDA-Public Use
  Company Number: USA040876892

PATIENT
  Age: 82 Year
  Sex: Male

DRUGS (1)
  1. HUMULIN N [Suspect]
     Dosage: 30 U DAY
     Dates: end: 20040401

REACTIONS (6)
  - CHILLS [None]
  - CORONARY ARTERY OCCLUSION [None]
  - FEELING COLD [None]
  - HYPERHIDROSIS [None]
  - INSOMNIA [None]
  - MYOCARDIAL INFARCTION [None]
